FAERS Safety Report 13605074 (Version 1)
Quarter: 2017Q2

REPORT INFORMATION
  Report Type: Spontaneous
  Country: US (occurrence: US)
  Receive Date: 20170602
  Receipt Date: 20170602
  Transmission Date: 20170830
  Serious: No
  Sender: FDA-Public Use
  Company Number: US-NOVEN PHARMACEUTICALS, INC.-US2016002318

PATIENT

DRUGS (2)
  1. METHYLPHENIDATE HYDROCHLORIDE. [Concomitant]
     Active Substance: METHYLPHENIDATE HYDROCHLORIDE
  2. DAYTRANA [Suspect]
     Active Substance: METHYLPHENIDATE
     Indication: ATTENTION DEFICIT/HYPERACTIVITY DISORDER
     Dosage: 45 MG (30MG PATCH + HALF 30MG PATCH), QD
     Route: 062
     Dates: start: 2011, end: 201609

REACTIONS (7)
  - Prescribed overdose [Recovered/Resolved]
  - Disturbance in attention [Unknown]
  - Wrong technique in product usage process [Recovered/Resolved]
  - Frustration tolerance decreased [Unknown]
  - Incorrect drug administration duration [Recovered/Resolved]
  - Off label use [Unknown]
  - Drug dose omission [Not Recovered/Not Resolved]

NARRATIVE: CASE EVENT DATE: 2011
